FAERS Safety Report 7067462-5 (Version None)
Quarter: 2010Q4

REPORT INFORMATION
  Report Type: 
  Country: None (occurrence: None)
  Receive Date: 20101028
  Receipt Date: 20101015
  Transmission Date: 20110411
  Serious: Yes (Hospitalization)
  Sender: FDA-Public Use
  Company Number: ES-ELI_LILLY_AND_COMPANY-ES201010003681

PATIENT
  Sex: Male
  Weight: 56 kg

DRUGS (4)
  1. FORTEO [Suspect]
     Indication: OSTEOPOROSIS
     Dosage: 20 UG, DAILY (1/D)
     Route: 058
  2. VENTOLIN [Concomitant]
     Indication: BRONCHITIS
     Dosage: UNK, AS NEEDED
     Route: 055
  3. SEGURIL [Concomitant]
     Indication: DIURETIC THERAPY
     Dosage: UNK, 2/D
     Route: 048
  4. SERETIDE [Concomitant]
     Indication: BRONCHITIS
     Dosage: UNK, 2/D
     Route: 055

REACTIONS (2)
  - HYPOGLYCAEMIA [None]
  - HYPOTENSION [None]
